FAERS Safety Report 10036443 (Version 2)
Quarter: 2014Q1

REPORT INFORMATION
  Report Type: Spontaneous
  Country: US (occurrence: US)
  Receive Date: 20140325
  Receipt Date: 20140325
  Transmission Date: 20141002
  Serious: Yes (Other)
  Sender: FDA-Public Use
  Company Number: US-GE HEALTHCARE MEDICAL DIAGNOSTICS-OSCN-PR-0811S-0630

PATIENT
  Age: 72 Year
  Sex: Male

DRUGS (12)
  1. OMNISCAN [Suspect]
     Indication: RENAL FAILURE
     Route: 042
     Dates: start: 20030103, end: 20030103
  2. OMNISCAN [Suspect]
     Indication: PERIPHERAL VASCULAR DISORDER
     Route: 042
     Dates: start: 20030807, end: 20030807
  3. OMNISCAN [Suspect]
     Indication: PERIPHERAL VASCULAR DISORDER
     Route: 042
     Dates: start: 20030922, end: 20030922
  4. OMNISCAN [Suspect]
     Indication: PERIPHERAL VASCULAR DISORDER
     Route: 042
     Dates: start: 20040729, end: 20040729
  5. OMNISCAN [Suspect]
     Indication: PRODUCT USED FOR UNKNOWN INDICATION
     Route: 042
     Dates: start: 20041201, end: 20041201
  6. OMNISCAN [Suspect]
     Indication: PAIN
     Route: 042
     Dates: start: 20050106, end: 20050106
  7. OMNISCAN [Suspect]
     Indication: DIPLOPIA
     Route: 042
     Dates: start: 20060224, end: 20060224
  8. OMNISCAN [Suspect]
     Indication: PERIPHERAL VASCULAR DISORDER
     Route: 042
     Dates: start: 20060412, end: 20060412
  9. OMNISCAN [Suspect]
     Indication: PERIPHERAL VASCULAR DISORDER
     Route: 042
     Dates: start: 20060524, end: 20060524
  10. MAGNEVIST [Suspect]
     Indication: PAIN IN EXTREMITY
     Route: 042
     Dates: start: 20030212, end: 20030212
  11. MAGNEVIST [Suspect]
     Indication: PERIPHERAL VASCULAR DISORDER
     Route: 042
     Dates: start: 20050607, end: 20050607
  12. EPOGEN [Concomitant]

REACTIONS (1)
  - Nephrogenic systemic fibrosis [Not Recovered/Not Resolved]
